FAERS Safety Report 23376402 (Version 1)
Quarter: 2024Q1

REPORT INFORMATION
  Report Type: Report from Study
  Country: JP (occurrence: JP)
  Receive Date: 20240108
  Receipt Date: 20240108
  Transmission Date: 20240410
  Serious: Yes (Death, Hospitalization)
  Sender: FDA-Public Use
  Company Number: JP-ABBVIE-22K-087-4337764-00

PATIENT
  Age: 85 Year
  Sex: Female
  Weight: 49 kg

DRUGS (7)
  1. RINVOQ [Suspect]
     Active Substance: UPADACITINIB
     Indication: Rheumatoid arthritis
     Dosage: 7.5 MILLIGRAM
     Route: 048
     Dates: start: 20210517, end: 20221209
  2. RINVOQ [Suspect]
     Active Substance: UPADACITINIB
     Indication: Rheumatoid arthritis
     Dosage: 7.5 MILLIGRAMS
     Route: 048
  3. PREDONINE [Suspect]
     Active Substance: PREDNISOLONE
     Indication: Rheumatoid arthritis
     Dosage: 1 MILLIGRAM,?PREDNISOLONE (PREDONINE)
     Route: 048
  4. METHOTREXATE [Concomitant]
     Active Substance: METHOTREXATE
     Indication: Rheumatoid arthritis
     Dosage: 4 MG/WEEK?MORE THAN 3 MONTHS
  5. FAMOTIDINE [Concomitant]
     Active Substance: FAMOTIDINE
     Indication: Product used for unknown indication
     Dosage: 10 MILLIGRAM
     Route: 048
  6. SULFAMETHOXAZOLE AND TRIMETHOPRIM [Concomitant]
     Active Substance: SULFAMETHOXAZOLE\TRIMETHOPRIM
     Indication: Product used for unknown indication
     Dosage: 0.5 TABLET/THREE TIMES A WEEK
     Route: 048
  7. MINODRONIC ACID [Concomitant]
     Active Substance: MINODRONIC ACID
     Indication: Product used for unknown indication
     Dosage: 50 MG/MONTH
     Route: 048

REACTIONS (3)
  - Death [Fatal]
  - Herpes zoster [Recovered/Resolved]
  - Enterocele [Recovered/Resolved]

NARRATIVE: CASE EVENT DATE: 20220106
